FAERS Safety Report 6810038-2 (Version None)
Quarter: 2010Q2

REPORT INFORMATION
  Report Type: 
  Country: None (occurrence: None)
  Receive Date: 20100630
  Receipt Date: 20100624
  Transmission Date: 20101027
  Serious: Yes (Hospitalization)
  Sender: FDA-Public Use
  Company Number: D0067757A

PATIENT
  Sex: Male
  Weight: 59 kg

DRUGS (1)
  1. LAMICTAL [Suspect]
     Dosage: 25MG PER DAY
     Route: 048
     Dates: start: 20091008, end: 20100527

REACTIONS (7)
  - DRUG ERUPTION [None]
  - EOSINOPHILIA [None]
  - PRURITUS [None]
  - RASH PRURITIC [None]
  - RUBELLA [None]
  - URTICARIA [None]
  - WEIGHT INCREASED [None]
